FAERS Safety Report 6773983-2 (Version None)
Quarter: 2010Q2

REPORT INFORMATION
  Report Type: 
  Country: None (occurrence: None)
  Receive Date: 20100617
  Receipt Date: 20100611
  Transmission Date: 20101027
  Serious: Yes (Death, Hospitalization, Other)
  Sender: FDA-Public Use
  Company Number: US-CELGENEUS-163-21880-10031545

PATIENT
  Sex: Female

DRUGS (9)
  1. REVLIMID [Suspect]
     Indication: MULTIPLE MYELOMA
     Route: 048
     Dates: start: 20100208
  2. REVLIMID [Suspect]
     Route: 048
     Dates: start: 20090216, end: 20090401
  3. REVLIMID [Suspect]
     Route: 048
     Dates: start: 20090429, end: 20090601
  4. REVLIMID [Suspect]
     Route: 048
     Dates: start: 20091001
  5. DEXAMETHASONE [Concomitant]
     Indication: MULTIPLE MYELOMA
     Route: 065
     Dates: start: 20100208
  6. DEXAMETHASONE [Concomitant]
     Route: 065
     Dates: start: 20090216, end: 20090601
  7. DEXAMETHASONE [Concomitant]
     Route: 065
     Dates: start: 20091001
  8. PAMIDRONATE DISODIUM [Concomitant]
     Indication: DRUG USE FOR UNKNOWN INDICATION
     Route: 051
  9. METOPROLOL [Concomitant]
     Indication: HYPERTENSION
     Route: 065

REACTIONS (6)
  - ACUTE MYOCARDIAL INFARCTION [None]
  - DIZZINESS POSTURAL [None]
  - FATIGUE [None]
  - LOBAR PNEUMONIA [None]
  - MEMORY IMPAIRMENT [None]
  - PANCYTOPENIA [None]
